FAERS Safety Report 7474038-4 (Version None)
Quarter: 2011Q2

REPORT INFORMATION
  Report Type: 
  Country: None (occurrence: None)
  Receive Date: 20110511
  Receipt Date: 20110509
  Transmission Date: 20111010
  Serious: Yes (Other)
  Sender: FDA-Public Use
  Company Number: US-PFIZER INC-2011099718

PATIENT
  Sex: Female
  Weight: 63.492 kg

DRUGS (6)
  1. ULTRAM [Concomitant]
     Indication: MIGRAINE
     Dosage: 2 TABLETS, 4 TIMES DAILY
     Route: 048
  2. TOVIAZ [Suspect]
     Indication: HYPERTONIC BLADDER
     Dosage: 8 MG, 1X/DAY
     Route: 048
     Dates: start: 20110506, end: 20110508
  3. TOVIAZ [Suspect]
     Indication: BLADDER DISORDER
  4. TOVIAZ [Suspect]
     Indication: CYSTITIS
  5. ZOLOFT [Concomitant]
     Indication: MAJOR DEPRESSION
     Dosage: UNK
     Route: 048
  6. NEURONTIN [Concomitant]
     Indication: MIGRAINE
     Dosage: 300 MG, 3X/DAY

REACTIONS (3)
  - FEELING JITTERY [None]
  - ABDOMINAL DISTENSION [None]
  - GASTROINTESTINAL HAEMORRHAGE [None]
